FAERS Safety Report 9902086 (Version 2)
Quarter: 2014Q1

REPORT INFORMATION
  Report Type: Spontaneous
  Country: US (occurrence: US)
  Receive Date: 20140217
  Receipt Date: 20140217
  Transmission Date: 20141002
  Serious: No
  Sender: FDA-Public Use
  Company Number: US-GILEAD-2011-0047403

PATIENT
  Sex: Female

DRUGS (3)
  1. LETAIRIS [Suspect]
     Indication: PULMONARY HYPERTENSION
     Dosage: 5 MG, UNK
     Route: 048
     Dates: start: 20111102, end: 20111201
  2. LETAIRIS [Suspect]
     Indication: HEART DISEASE CONGENITAL
     Dosage: 10 MG, UNK
     Route: 048
     Dates: start: 20111202
  3. TYVASO [Concomitant]

REACTIONS (3)
  - Malaise [Unknown]
  - Fluid retention [Unknown]
  - Dyspnoea [Unknown]
